FAERS Safety Report 18207277 (Version 7)
Quarter: 2020Q4

REPORT INFORMATION
  Report Type: Spontaneous
  Country: NL (occurrence: NL)
  Receive Date: 20200828
  Receipt Date: 20201211
  Transmission Date: 20210113
  Serious: Yes (Hospitalization)
  Sender: FDA-Public Use
  Company Number: NL-TEVA-2020-NL-1807772

PATIENT
  Age: 56 Year
  Sex: Male

DRUGS (1)
  1. OCTREOTIDE. [Suspect]
     Active Substance: OCTREOTIDE
     Route: 030
     Dates: start: 20200429, end: 20200611

REACTIONS (9)
  - Injection site pustule [Recovered/Resolved]
  - Eating disorder [Recovered/Resolved]
  - Illusion [Recovered/Resolved]
  - Product solubility abnormal [Recovered/Resolved]
  - Feeling abnormal [Recovered/Resolved]
  - Pain [Recovered/Resolved]
  - Abscess limb [Recovered/Resolved]
  - Injection site swelling [Recovered/Resolved]
  - Sleep disorder [Recovered/Resolved]

NARRATIVE: CASE EVENT DATE: 20200429
